FAERS Safety Report 6181552-0 (Version None)
Quarter: 2009Q2

REPORT INFORMATION
  Report Type: 
  Country: None (occurrence: None)
  Receive Date: 20090501
  Receipt Date: 20090424
  Transmission Date: 20091009
  Serious: Yes (Other)
  Sender: FDA-Public Use
  Company Number: SPV1-2009-00260

PATIENT
  Sex: Male

DRUGS (2)
  1. FOSRENOL [Suspect]
     Indication: HYPERPHOSPHATAEMIA
     Dosage: 3X500 MG, ORAL
     Route: 048
     Dates: start: 20080922, end: 20081219
  2. FOSRENOL [Suspect]
     Indication: HYPERPHOSPHATAEMIA
     Dosage: 3X500 MG, ORAL
     Route: 048
     Dates: start: 20090101

REACTIONS (3)
  - AUTOIMMUNE DISORDER [None]
  - DERMATITIS BULLOUS [None]
  - PRURITUS [None]
